FAERS Safety Report 5733208-3 (Version None)
Quarter: 2008Q2

REPORT INFORMATION
  Report Type: 
  Country: None (occurrence: None)
  Receive Date: 20080507
  Receipt Date: 20080423
  Transmission Date: 20081010
  Serious: Yes (Death, Life-Threatening, Hospitalization)
  Sender: FDA-Public Use
  Company Number: A-CH2008-19817

PATIENT
  Age: 17 Year
  Sex: Male
  Weight: 69.5 kg

DRUGS (3)
  1. TRACLEER [Suspect]
     Indication: PULMONARY HYPERTENSION
     Dosage: 62.5 MG, BID, ORAL
     Route: 048
     Dates: start: 20051011, end: 20080312
  2. ROFERON-A [Concomitant]
  3. ZANTAC [Concomitant]

REACTIONS (8)
  - ABDOMINAL PAIN [None]
  - APPENDICECTOMY [None]
  - BURKITT'S LYMPHOMA [None]
  - CHEST PAIN [None]
  - ENTERECTOMY [None]
  - LUNG DISORDER [None]
  - OXYGEN SATURATION DECREASED [None]
  - TUMOUR LYSIS SYNDROME [None]
